FAERS Safety Report 5766053-3 (Version None)
Quarter: 2008Q2

REPORT INFORMATION
  Report Type: 
  Country: None (occurrence: None)
  Receive Date: 20080611
  Receipt Date: 20080603
  Transmission Date: 20081010
  Serious: Yes (Other)
  Sender: FDA-Public Use
  Company Number: US-AVENTIS-200813483US

PATIENT
  Sex: Male

DRUGS (1)
  1. LANTUS [Suspect]
     Dosage: DOSE: UNK

REACTIONS (2)
  - COLON CANCER [None]
  - GLYCOSYLATED HAEMOGLOBIN INCREASED [None]
